FAERS Safety Report 8500205-4 (Version None)
Quarter: 2012Q3

REPORT INFORMATION
  Report Type: 
  Country: None (occurrence: None)
  Receive Date: 20120710
  Receipt Date: 20120706
  Transmission Date: 20120928
  Serious: Yes (Hospitalization)
  Sender: FDA-Public Use
  Company Number: PE-PFIZER INC-2012158299

PATIENT
  Age: 85 Year
  Sex: Female

DRUGS (1)
  1. XANAX XR [Suspect]
     Dosage: 1 MG, UNK
     Route: 048
     Dates: start: 20100101

REACTIONS (1)
  - GALLBLADDER DISORDER [None]
